FAERS Safety Report 9298621 (Version 1)
Quarter: 2013Q2

REPORT INFORMATION
  Report Type: Spontaneous
  Country: CH (occurrence: CH)
  Receive Date: 20130520
  Receipt Date: 20130520
  Transmission Date: 20140414
  Serious: Yes (Other)
  Sender: FDA-Public Use
  Company Number: CH-ELI_LILLY_AND_COMPANY-CH201305003218

PATIENT
  Sex: 0
  Weight: 3.7 kg

DRUGS (2)
  1. CYMBALTA [Suspect]
     Dosage: UNK
     Route: 064
  2. CYMBALTA [Suspect]
     Dosage: UNK
     Route: 064

REACTIONS (2)
  - Oligohydramnios [Recovered/Resolved]
  - Foetal exposure during pregnancy [Recovered/Resolved]
